FAERS Safety Report 19083288 (Version 1)
Quarter: 2021Q2

REPORT INFORMATION
  Report Type: Spontaneous
  Country: US (occurrence: US)
  Receive Date: 20210401
  Receipt Date: 20210401
  Transmission Date: 20210717
  Serious: No
  Sender: FDA-Public Use
  Company Number: None

PATIENT
  Age: 46 Year
  Sex: Male
  Weight: 83.25 kg

DRUGS (2)
  1. SEROQUEL [Suspect]
     Active Substance: QUETIAPINE FUMARATE
  2. GUANFACINE HCL ER 24HR 2 MG TAB MFR : APOTEX [Suspect]
     Active Substance: GUANFACINE HYDROCHLORIDE
     Indication: ATTENTION DEFICIT HYPERACTIVITY DISORDER
     Dosage: ?          QUANTITY:1 TABLET(S);?
     Route: 048
     Dates: start: 20210120, end: 20210331

REACTIONS (5)
  - Recalled product administered [None]
  - Dizziness [None]
  - Product commingling [None]
  - Manufacturing production issue [None]
  - Fatigue [None]

NARRATIVE: CASE EVENT DATE: 20210220
